FAERS Safety Report 5193683-2 (Version None)
Quarter: 2006Q4

REPORT INFORMATION
  Report Type: 
  Country: None (occurrence: None)
  Receive Date: 20061222
  Receipt Date: 20061215
  Transmission Date: 20070319
  Serious: Yes (Hospitalization)
  Sender: FDA-Public Use
  Company Number: SU-2006-005726

PATIENT
  Age: 52 Year
  Sex: Male

DRUGS (2)
  1. BENICAR HCT [Suspect]
     Indication: BLOOD PRESSURE
     Dosage: 40.25 MG QD PO
     Route: 048
     Dates: start: 20060101, end: 20060101
  2. LYRICA [Concomitant]

REACTIONS (2)
  - BLOOD PRESSURE DECREASED [None]
  - WEIGHT INCREASED [None]
